FAERS Safety Report 6526631-0 (Version None)
Quarter: 2010Q1

REPORT INFORMATION
  Report Type: 
  Country: None (occurrence: None)
  Receive Date: 20100105
  Receipt Date: 20091228
  Transmission Date: 20100710
  Serious: No
  Sender: FDA-Public Use
  Company Number: JP-ASTRAZENECA-2009SE31778

PATIENT
  Age: 52 Year
  Sex: Female

DRUGS (1)
  1. ARIMIDEX [Suspect]
     Indication: BREAST CANCER
     Route: 048
     Dates: start: 20091002, end: 20091211

REACTIONS (1)
  - LIVER FUNCTION TEST ABNORMAL [None]
